FAERS Safety Report 6740191-0 (Version None)
Quarter: 2010Q2

REPORT INFORMATION
  Report Type: 
  Country: None (occurrence: None)
  Receive Date: 20100525
  Receipt Date: 20100517
  Transmission Date: 20101027
  Serious: Yes (Hospitalization)
  Sender: FDA-Public Use
  Company Number: A0791338A

PATIENT
  Age: 42 Year
  Weight: 77.3 kg

DRUGS (1)
  1. AVANDIA [Suspect]
     Dosage: 8MG PER DAY
     Route: 065
     Dates: start: 20010601, end: 20090101

REACTIONS (4)
  - CARDIAC DISORDER [None]
  - FATIGUE [None]
  - MYOCARDIAL INFARCTION [None]
  - WEIGHT INCREASED [None]
